FAERS Safety Report 4807209-3 (Version None)
Quarter: 2005Q4

REPORT INFORMATION
  Report Type: 
  Country: None (occurrence: None)
  Receive Date: 20051019
  Receipt Date: 20051004
  Transmission Date: 20060501
  Serious: Yes (Hospitalization)
  Sender: FDA-Public Use
  Company Number: 2005EU001173

PATIENT
  Age: 57 Year
  Sex: Male

DRUGS (9)
  1. FK506 (TACROLIMUS CAPSULES) [Suspect]
     Indication: LIVER TRANSPLANT
     Dosage: 0.00 MG, UNK; 0.50 MG, UID/QD, ORAL
     Route: 048
     Dates: start: 20050311, end: 20050326
  2. FK506 (TACROLIMUS CAPSULES) [Suspect]
     Indication: LIVER TRANSPLANT
     Dosage: 0.00 MG, UNK; 0.50 MG, UID/QD, ORAL
     Route: 048
     Dates: start: 20050327
  3. MYCOPHENOLATE MOFETIL (MYCOPHENOLATE MOFETIL) [Suspect]
     Indication: LIVER TRANSPLANT
     Dosage: SEE IMAGE
     Route: 048
     Dates: start: 20050311, end: 20050317
  4. MYCOPHENOLATE MOFETIL (MYCOPHENOLATE MOFETIL) [Suspect]
     Indication: LIVER TRANSPLANT
     Dosage: SEE IMAGE
     Route: 048
     Dates: start: 20050318, end: 20050326
  5. METHYLPREDNISOLONE [Suspect]
     Indication: LIVER TRANSPLANT
     Dosage: 120.00 MG, UID/QD, UNK
     Route: 065
     Dates: start: 20050311, end: 20050313
  6. PREDNISONE [Suspect]
     Indication: LIVER TRANSPLANT
     Dosage: 5.00 MG, UID/QD, UNK
     Route: 065
     Dates: start: 20050314
  7. GANCICLOVIR SODIUM [Concomitant]
  8. IMMUNE GLOBULIN INTRAVENOUS (HUMAN) [Concomitant]
  9. DIGOXIN [Concomitant]

REACTIONS (1)
  - CARPUS CURVUS [None]
